FAERS Safety Report 9496838 (Version 1)
Quarter: 2013Q3

REPORT INFORMATION
  Report Type: Spontaneous
  Country: BR (occurrence: BR)
  Receive Date: 20130904
  Receipt Date: 20130904
  Transmission Date: 20140515
  Serious: Yes (Hospitalization)
  Sender: FDA-Public Use
  Company Number: BR-PFIZER INC-2013251735

PATIENT
  Age: 64 Year
  Sex: Female

DRUGS (1)
  1. CELEBRA [Suspect]
     Indication: PAIN
     Dosage: 200 MG, 1X/DAY (ONE CAPSULE DAILY)
     Route: 048
     Dates: start: 20130401

REACTIONS (2)
  - Arthropathy [Unknown]
  - Pain in extremity [Not Recovered/Not Resolved]
